FAERS Safety Report 7099279-X (Version None)
Quarter: 2010Q4

REPORT INFORMATION
  Report Type: 
  Country: None (occurrence: None)
  Receive Date: 20101112
  Receipt Date: 20101101
  Transmission Date: 20110411
  Serious: Yes (Other)
  Sender: FDA-Public Use
  Company Number: PHHY2010US72992

PATIENT
  Sex: Female

DRUGS (2)
  1. EXJADE [Suspect]
     Indication: MYELODYSPLASTIC SYNDROME
     Dosage: 1250 MG
     Route: 048
     Dates: start: 20101019
  2. EXJADE [Suspect]
     Indication: IRON METABOLISM DISORDER

REACTIONS (6)
  - DIARRHOEA [None]
  - INFLUENZA LIKE ILLNESS [None]
  - LIP SWELLING [None]
  - NAUSEA [None]
  - PAIN [None]
  - VOMITING [None]
